FAERS Safety Report 5504983-8 (Version None)
Quarter: 2007Q4

REPORT INFORMATION
  Report Type: 
  Country: None (occurrence: None)
  Receive Date: 20071031
  Receipt Date: 20071017
  Transmission Date: 20080405
  Serious: Yes (Other)
  Sender: FDA-Public Use
  Company Number: US021487

PATIENT
  Age: 44 Year
  Sex: Female

DRUGS (2)
  1. PROVIGIL [Suspect]
     Dosage: ORAL
     Route: 048
     Dates: end: 20071017
  2. EPINEPHRINE [Suspect]
     Indication: HYPERSENSITIVITY
     Dosage: 2 PENS ADMINISTERED IN ONE WEEK PRN

REACTIONS (2)
  - ANXIETY [None]
  - HYPERSENSITIVITY [None]
